FAERS Safety Report 8808509 (Version 1)
Quarter: 2012Q4

REPORT INFORMATION
  Report Type: 
  Country: US (occurrence: US)
  Receive Date: 20120926
  Receipt Date: 20120926
  Transmission Date: 20130627
  Serious: No
  Sender: FDA-Public Use
  Company Number: US-BAYER-2012-096533

PATIENT
  Sex: Female

DRUGS (19)
  1. CIPRO [Suspect]
  2. ZESTRIL [Concomitant]
     Indication: HYPERTENSION
     Dosage: 40 mg, UNK
  3. LOVASTATIN [Concomitant]
     Indication: BLOOD CHOLESTEROL INCREASED
     Dosage: 20 mg, UNK
  4. MOBIC [Concomitant]
     Indication: FIBROMYALGIA
     Dosage: 15 mg, UNK
  5. AMARYL [Concomitant]
     Indication: TYPE 2 DIABETES MELLITUS
     Dosage: 4 mg, UNK
  6. JANUVIA [Concomitant]
     Indication: TYPE 2 DIABETES MELLITUS
     Dosage: 100 mg, UNK
  7. METFORMIN ER [Concomitant]
     Indication: TYPE 2 DIABETES MELLITUS
     Dosage: 2 tablets bedtime+1 tablet in the morning
  8. METFORMIN ER [Concomitant]
     Indication: TYPE 2 DIABETES MELLITUS
     Dosage: 500 mg, AM
  9. SKELAXIN [Concomitant]
     Indication: FIBROMYALGIA
     Dosage: 800 mg, UNK
  10. EXCEDRIN [CAFFEINE,PARACETAMOL] [Concomitant]
     Indication: FIBROMYALGIA
  11. ZANAFLEX [Concomitant]
     Indication: INSOMNIA
     Dosage: 2 mg, UNK
  12. PAMPRIN [Concomitant]
     Indication: INSOMNIA
     Dosage: 1 UNK, UNK
  13. BENADRYL [Concomitant]
     Indication: HYPERSENSITIVITY
     Dosage: UNK UNK, PRN
  14. BENADRYL [Concomitant]
     Indication: ALLERGIC SINUSITIS
  15. CHLORTRIMETON [Concomitant]
     Indication: HYPERSENSITIVITY
     Dosage: UNK UNK, PRN
  16. CHLORTRIMETON [Concomitant]
     Indication: ALLERGIC SINUSITIS
  17. VALTREX [Concomitant]
     Indication: HERPES ZOSTER
     Dosage: UNK UNK, PRN
  18. DOXYCYCLINE [DOXYCYCLINE] [Concomitant]
     Indication: HERPES ZOSTER
  19. DOXYCYCLINE [DOXYCYCLINE] [Concomitant]
     Indication: INFECTION

REACTIONS (2)
  - Drug hypersensitivity [None]
  - Rash [None]
